FAERS Safety Report 8969210 (Version 1)
Quarter: 2012Q4

REPORT INFORMATION
  Report Type: 
  Country: US (occurrence: US)
  Receive Date: 20121218
  Receipt Date: 20121218
  Transmission Date: 20130627
  Serious: No
  Sender: FDA-Public Use
  Company Number: US-BRISTOL-MYERS SQUIBB COMPANY-16312415

PATIENT
  Age: 49 Year
  Sex: Female
  Weight: 84 kg

DRUGS (2)
  1. ABILIFY [Suspect]
     Indication: DELUSIONAL DISORDER, PERSECUTORY TYPE
     Dosage: Increased to 20mg and reduced to 15mg
     Route: 048
     Dates: start: 2002
  2. ACIPHEX [Concomitant]

REACTIONS (2)
  - Libido increased [Not Recovered/Not Resolved]
  - Muscle twitching [Recovered/Resolved]
